FAERS Safety Report 8883447 (Version 1)
Quarter: 2012Q4

REPORT INFORMATION
  Report Type: 
  Country: VE (occurrence: VE)
  Receive Date: 20121102
  Receipt Date: 20121102
  Transmission Date: 20130627
  Serious: Yes (Other)
  Sender: FDA-Public Use
  Company Number: VE-ROCHE-1151457

PATIENT
  Sex: Female

DRUGS (5)
  1. XOLAIR [Suspect]
     Indication: HYPERSENSITIVITY
     Route: 065
     Dates: start: 201101, end: 201106
  2. XOLAIR [Suspect]
     Route: 065
     Dates: start: 201112, end: 201203
  3. CALCORT [Concomitant]
     Route: 065
  4. ALVESCO [Concomitant]
     Route: 065
  5. LEVOCETIRIZINE [Concomitant]
     Route: 065

REACTIONS (2)
  - Fall [Unknown]
  - Ligament sprain [Recovered/Resolved]
